FAERS Safety Report 5343966-8 (Version None)
Quarter: 2007Q2

REPORT INFORMATION
  Report Type: 
  Country: None (occurrence: None)
  Receive Date: 20070604
  Receipt Date: 20070522
  Transmission Date: 20071010
  Serious: Yes (Death)
  Sender: FDA-Public Use
  Company Number: JP-ROCHE-489938

PATIENT
  Age: 3 Year
  Sex: Male
  Weight: 13.5 kg

DRUGS (1)
  1. TAMIFLU [Suspect]
     Dosage: DOSE REPORTED AS 27.5 MG/2 MG/KG
     Route: 065
     Dates: start: 20021216

REACTIONS (1)
  - SUDDEN DEATH [None]
